FAERS Safety Report 9270217 (Version 2)
Quarter: 2013Q4

REPORT INFORMATION
  Report Type: Spontaneous
  Country: GB (occurrence: GB)
  Receive Date: 20130503
  Receipt Date: 20131121
  Transmission Date: 20140711
  Serious: Yes (Life-Threatening)
  Sender: FDA-Public Use
  Company Number: GB-GLAXOSMITHKLINE-B0888494A

PATIENT
  Age: 87 Year
  Sex: 0
  Weight: 62 kg

DRUGS (7)
  1. AVAMYS [Suspect]
     Indication: NASAL CONGESTION
     Route: 055
     Dates: start: 20120521, end: 20130408
  2. TRAMADOL [Concomitant]
     Indication: PAIN
     Dosage: 4IUAX PER DAY
     Route: 048
  3. PARACETAMOL [Concomitant]
     Indication: PAIN
     Dosage: 8IUAX PER DAY
     Route: 048
  4. IBUPROFEN [Concomitant]
     Indication: PAIN
     Dosage: 3IUAX PER DAY
     Route: 048
  5. FLUPENTIXOL [Concomitant]
     Indication: DEPRESSION
     Dosage: 2IUAX PER DAY
     Route: 048
  6. CANDESARTAN [Concomitant]
     Indication: HYPERTENSION
     Dosage: 1IUAX PER DAY
     Route: 048
  7. OMEPRAZOLE [Concomitant]

REACTIONS (10)
  - Tremor [Recovered/Resolved]
  - Dizziness [Recovered/Resolved]
  - Diarrhoea [Recovered/Resolved]
  - Urine output increased [Recovered/Resolved]
  - Epistaxis [Recovered/Resolved]
  - Pyrexia [Recovered/Resolved]
  - Rhinorrhoea [Recovered/Resolved]
  - Pain [Recovered/Resolved]
  - Lymphadenopathy [Recovered/Resolved]
  - Infection [Recovered/Resolved]
